FAERS Safety Report 8883397 (Version 1)
Quarter: 2012Q4

REPORT INFORMATION
  Report Type: 
  Country: FR (occurrence: FR)
  Receive Date: 20121102
  Receipt Date: 20121102
  Transmission Date: 20130627
  Serious: Yes (Death)
  Sender: FDA-Public Use
  Company Number: FR-SANOFI-AVENTIS-2012SA077835

PATIENT
  Age: 88 Year
  Sex: Female
  Weight: 67 kg

DRUGS (11)
  1. CLAFORAN [Suspect]
     Indication: SEPTIC SHOCK
     Route: 042
     Dates: start: 20120729, end: 20120729
  2. GENTAMICIN [Suspect]
     Indication: SEPTIC SHOCK
     Route: 042
     Dates: start: 20120729, end: 20120729
  3. STILNOX [Concomitant]
  4. CORDARONE [Concomitant]
  5. SINEMET [Concomitant]
  6. VENLAFAXINE [Concomitant]
  7. UVEDOSE [Concomitant]
  8. PARACETAMOL [Concomitant]
  9. TIORFAN [Concomitant]
  10. ULTRA-LEVURE [Concomitant]
  11. TAZOCIN [Concomitant]
     Indication: SEPTIC SHOCK
     Dates: start: 20120729, end: 20120731

REACTIONS (2)
  - Renal failure acute [Fatal]
  - Hyperkalaemia [Fatal]
